FAERS Safety Report 4523201-0 (Version None)
Quarter: 2004Q4

REPORT INFORMATION
  Report Type: 
  Country: None (occurrence: None)
  Receive Date: 20041207
  Receipt Date: 20041207
  Transmission Date: 20050328
  Serious: Yes (Other)
  Sender: FDA-Public Use
  Company Number: None

PATIENT
  Age: 53 Year
  Sex: Male
  Weight: 89.8122 kg

DRUGS (1)
  1. SPORANOX [Suspect]
     Indication: TINEA PEDIS
     Dosage: 2 X ORAL
     Route: 048
     Dates: start: 19930701, end: 19930707

REACTIONS (1)
  - MYOCARDIAL INFARCTION [None]
